FAERS Safety Report 18079118 (Version 2)
Quarter: 2020Q3

REPORT INFORMATION
  Report Type: Spontaneous
  Country: US (occurrence: US)
  Receive Date: 20200728
  Receipt Date: 20200807
  Transmission Date: 20201103
  Serious: No
  Sender: FDA-Public Use
  Company Number: US-PFIZER INC-2020285974

PATIENT
  Age: 11 Year
  Sex: Male

DRUGS (3)
  1. CRISABOROLE [Suspect]
     Active Substance: CRISABOROLE
     Indication: DERMATITIS
  2. EUCRISA [Suspect]
     Active Substance: CRISABOROLE
     Indication: DERMATITIS
     Dosage: UNK
  3. CRISABOROLE [Suspect]
     Active Substance: CRISABOROLE
     Indication: DERMATITIS ATOPIC
     Dosage: 1 DF, 2X/DAY (FOR 30 DAYS, APPLY EXTERNALLY)
     Route: 061

REACTIONS (2)
  - Dermatitis [Unknown]
  - Condition aggravated [Unknown]
